FAERS Safety Report 7077935-7 (Version None)
Quarter: 2010Q4

REPORT INFORMATION
  Report Type: 
  Country: None (occurrence: None)
  Receive Date: 20101101
  Receipt Date: 20100629
  Transmission Date: 20110411
  Serious: Yes (Death, Hospitalization)
  Sender: FDA-Public Use
  Company Number: DE-AMGEN-KDC406521

PATIENT

DRUGS (17)
  1. PEGFILGRASTIM [Suspect]
     Indication: CHEMOTHERAPY
     Dosage: 6 MG, UNK
     Route: 058
     Dates: start: 20100403, end: 20100409
  2. DOXORUBICIN HYDROCHLORIDE [Suspect]
     Dosage: 85 MG, UNK
     Route: 042
  3. CYCLOPHOSPHAMIDE [Suspect]
     Dosage: 1300 MG, UNK
     Route: 042
  4. UNSPECIFIED ANTINEOPLASTIC AGENT [Concomitant]
  5. ALLOPURINOL [Concomitant]
     Dosage: 150 MG, UNK
  6. DELIX [Concomitant]
     Dosage: 5 MG, UNK
  7. CIPRALEX [Concomitant]
     Dosage: 20 MG, UNK
  8. TORSEMIDE [Concomitant]
     Dosage: 10 MG, UNK
  9. BISOPROLOL FUMARATE [Concomitant]
     Dosage: 2.5 MG, UNK
  10. TIOTROPIUM BROMIDE [Concomitant]
     Dosage: UNK UNK, UNK
  11. DOXEPIN HYDROCHLORIDE [Concomitant]
     Dosage: 20 MG, UNK
  12. VINCRISTINE SULFATE [Concomitant]
     Dosage: 2 MG, UNK
     Route: 040
  13. PREDNISONE [Concomitant]
     Dosage: 100 MG, UNK
     Route: 048
  14. RITUXIMAB [Concomitant]
     Dosage: 630 MG, UNK
     Route: 042
  15. GRANISETRON HCL [Concomitant]
     Dosage: UNK UNK, UNK
     Route: 042
  16. CLEMASTINE FUMARATE [Concomitant]
  17. RANITIDINE HYDROCHLORIDE [Concomitant]

REACTIONS (21)
  - BLOOD CALCIUM DECREASED [None]
  - BLOOD GLUCOSE INCREASED [None]
  - BLOOD LACTATE DEHYDROGENASE INCREASED [None]
  - BLOOD POTASSIUM DECREASED [None]
  - BLOOD UREA INCREASED [None]
  - CARDIOPULMONARY FAILURE [None]
  - DEATH [None]
  - DRUG INEFFECTIVE [None]
  - GENERAL PHYSICAL HEALTH DETERIORATION [None]
  - HAEMATOCRIT DECREASED [None]
  - HAEMOGLOBIN DECREASED [None]
  - LEUKOPENIA [None]
  - NEUTROPENIA [None]
  - ORAL NEOPLASM [None]
  - PLATELET COUNT DECREASED [None]
  - PROTEIN TOTAL DECREASED [None]
  - RED BLOOD CELL COUNT DECREASED [None]
  - SLEEP DISORDER [None]
  - SOMNOLENCE [None]
  - TRACHEAL STENOSIS [None]
  - WHITE BLOOD CELL COUNT INCREASED [None]
